FAERS Safety Report 23116169 (Version 3)
Quarter: 2024Q1

REPORT INFORMATION
  Report Type: Spontaneous
  Country: US (occurrence: US)
  Receive Date: 20231027
  Receipt Date: 20240219
  Transmission Date: 20240410
  Serious: Yes (Other)
  Sender: FDA-Public Use
  Company Number: US-LUNDBECK-DKLU3069301

PATIENT
  Age: 7 Month
  Sex: Male
  Weight: 4.45 kg

DRUGS (7)
  1. SABRIL [Suspect]
     Active Substance: VIGABATRIN
     Indication: Seizure
     Route: 065
     Dates: start: 202308
  2. SABRIL [Suspect]
     Active Substance: VIGABATRIN
     Indication: Seizure
     Dosage: CRUSH ONE TABLET AND MIX IN 10 ML WATER. GIVE/TAKE 6 MLS (300 MG) IN THE MORNING
     Route: 048
  3. SABRIL [Suspect]
     Active Substance: VIGABATRIN
     Dosage: CRUSH ONE TABLET AND MIX IN 10 ML OF WATER AND GIVE 7 ML (350 MG) EVERY EVENING
     Route: 048
  4. VITAMINS [Concomitant]
     Active Substance: VITAMINS
     Indication: Product used for unknown indication
     Route: 065
  5. CLOZEN [Concomitant]
     Indication: Product used for unknown indication
     Route: 065
  6. PHENOBARBITAL [Concomitant]
     Active Substance: PHENOBARBITAL
     Indication: Product used for unknown indication
     Route: 065
  7. KEPPRA [Concomitant]
     Active Substance: LEVETIRACETAM
     Indication: Product used for unknown indication
     Route: 065

REACTIONS (2)
  - Drug withdrawal convulsions [Unknown]
  - Product dose omission issue [Unknown]
